FAERS Safety Report 9637628 (Version 1)
Quarter: 2013Q4

REPORT INFORMATION
  Report Type: Spontaneous
  Country: US (occurrence: None)
  Receive Date: 20131018
  Receipt Date: 20131018
  Transmission Date: 20140711
  Serious: Yes (Death)
  Sender: FDA-Public Use
  Company Number: 2013AP008517

PATIENT
  Age: 74 Year
  Sex: Female

DRUGS (3)
  1. METFORMIN HCL [Suspect]
     Route: 048
  2. SPIRONOLACTONE [Suspect]
     Route: 048
  3. FUROSEMIDE [Suspect]
     Route: 048

REACTIONS (1)
  - Adverse reaction [None]
